FAERS Safety Report 11852911 (Version 2)
Quarter: 2016Q1

REPORT INFORMATION
  Report Type: Spontaneous
  Country: US (occurrence: US)
  Receive Date: 20151218
  Receipt Date: 20160303
  Transmission Date: 20160526
  Serious: Yes (Other)
  Sender: FDA-Public Use
  Company Number: US-SA-2015SA213240

PATIENT
  Age: 69 Year
  Sex: Female

DRUGS (2)
  1. TOUJEO [Suspect]
     Active Substance: INSULIN GLARGINE
     Indication: DIABETES MELLITUS
     Dosage: DOSE:10 UNIT(S)
     Route: 058
     Dates: start: 20151204, end: 20151204
  2. SOLOSTAR [Concomitant]
     Active Substance: DEVICE
     Indication: DIABETES MELLITUS
     Route: 058
     Dates: start: 20151204, end: 20151204

REACTIONS (3)
  - Hypersensitivity vasculitis [Not Recovered/Not Resolved]
  - Rash papular [Not Recovered/Not Resolved]
  - Staphylococcal infection [Unknown]
